FAERS Safety Report 13553208 (Version 1)
Quarter: 2017Q2

REPORT INFORMATION
  Report Type: Spontaneous
  Country: US (occurrence: US)
  Receive Date: 20170516
  Receipt Date: 20170516
  Transmission Date: 20170830
  Serious: Yes (Life-Threatening, Hospitalization, Other)
  Sender: FDA-Public Use
  Company Number: None

PATIENT
  Age: 48 Year
  Sex: Male
  Weight: 90 kg

DRUGS (2)
  1. COBIMETINIB [Suspect]
     Active Substance: COBIMETINIB
     Indication: MALIGNANT MELANOMA
     Dosage: ?          OTHER FREQUENCY:QD 21D ON 7D OFF;?
     Route: 048
     Dates: start: 20170214, end: 20170307
  2. VEMURAFENIB [Suspect]
     Active Substance: VEMURAFENIB
     Indication: MALIGNANT MELANOMA
     Route: 048
     Dates: start: 20170214, end: 20170315

REACTIONS (17)
  - Fatigue [None]
  - Hyperuricaemia [None]
  - Oedema [None]
  - Metabolic acidosis [None]
  - Acute kidney injury [None]
  - Transaminases increased [None]
  - Asthenia [None]
  - Hypotension [None]
  - Thrombocytopenia [None]
  - Pyrexia [None]
  - Renal failure [None]
  - Dialysis [None]
  - Disseminated intravascular coagulation [None]
  - Rash [None]
  - Rhabdomyolysis [None]
  - Tachycardia [None]
  - Skin exfoliation [None]

NARRATIVE: CASE EVENT DATE: 20170316
